FAERS Safety Report 6693312-2 (Version None)
Quarter: 2010Q2

REPORT INFORMATION
  Report Type: 
  Country: None (occurrence: None)
  Receive Date: 20100421
  Receipt Date: 20100421
  Transmission Date: 20101027
  Serious: Yes (Other)
  Sender: FDA-Public Use
  Company Number: None

PATIENT
  Age: 68 Year
  Sex: Male
  Weight: 97.5234 kg

DRUGS (2)
  1. ASTEPRO [Suspect]
     Indication: ALLERGY TEST POSITIVE
     Dosage: TWO NASAL SPRAYS/NOSTAL
     Dates: start: 20100414, end: 20100416
  2. ASTEPRO [Suspect]
     Indication: RHINITIS
     Dosage: TWO NASAL SPRAYS/NOSTAL
     Dates: start: 20100414, end: 20100416

REACTIONS (3)
  - ABDOMINAL PAIN [None]
  - DIARRHOEA [None]
  - DOCUMENTED HYPERSENSITIVITY TO ADMINISTERED DRUG [None]
